FAERS Safety Report 23320143 (Version 1)
Quarter: 2023Q4

REPORT INFORMATION
  Report Type: Spontaneous
  Country: KR (occurrence: KR)
  Receive Date: 20231220
  Receipt Date: 20231220
  Transmission Date: 20240110
  Serious: Yes (Other)
  Sender: FDA-Public Use
  Company Number: KR-BoehringerIngelheim-2023-BI-279202

PATIENT
  Age: 64 Year
  Sex: Female

DRUGS (3)
  1. ATROVENT [Suspect]
     Active Substance: IPRATROPIUM BROMIDE
     Indication: Productive cough
  2. ACETYLCYSTEINE [Suspect]
     Active Substance: ACETYLCYSTEINE
     Indication: Productive cough
  3. DICLOFENAC [Suspect]
     Active Substance: DICLOFENAC
     Indication: Pain

REACTIONS (2)
  - Respiratory tract oedema [Unknown]
  - Urticaria [Unknown]
